FAERS Safety Report 10558566 (Version 5)
Quarter: 2014Q4

REPORT INFORMATION
  Report Type: Spontaneous
  Country: CL (occurrence: CL)
  Receive Date: 20141031
  Receipt Date: 20141230
  Transmission Date: 20150529
  Serious: Yes (Disabling)
  Sender: FDA-Public Use
  Company Number: CL-009507513-1407CHL008420

PATIENT
  Age: 63 Year
  Sex: Female

DRUGS (6)
  1. REBETOL [Suspect]
     Active Substance: RIBAVIRIN
     Dosage: 1000 MG, DAILY (3 TABLETS IN THE MORNING AND 2 IN THE EVENING)
     Route: 048
     Dates: start: 20140826
  2. REBETOL [Suspect]
     Active Substance: RIBAVIRIN
     Dosage: TOTAL DAILY DOSE: 600 MG, QD
     Route: 048
     Dates: start: 20141118
  3. TELAPREVIR [Concomitant]
     Active Substance: TELAPREVIR
     Indication: HEPATITIS C
     Dosage: 3 TABLETS, Q12H
     Route: 048
     Dates: start: 20140811, end: 20141102
  4. REBETOL [Suspect]
     Active Substance: RIBAVIRIN
     Dosage: 800 MG, QD
     Route: 048
     Dates: end: 20141118
  5. REBETOL [Suspect]
     Active Substance: RIBAVIRIN
     Indication: HEPATITIS C
     Dosage: TOTAL DAILY DOSE: 1200 MG, FREQUENCY: DAILY
     Route: 048
     Dates: start: 20140713, end: 20140826
  6. PEGASYS [Concomitant]
     Active Substance: PEGINTERFERON ALFA-2A
     Indication: HEPATITIS C
     Dosage: UNK, WEEKLY
     Route: 058
     Dates: start: 20140713

REACTIONS (31)
  - Dermatitis allergic [Recovering/Resolving]
  - Feeling abnormal [Unknown]
  - Myalgia [Unknown]
  - Rash erythematous [Recovering/Resolving]
  - Oropharyngeal plaque [Unknown]
  - Mood altered [Recovering/Resolving]
  - Thirst [Unknown]
  - Alopecia [Unknown]
  - Balance disorder [Unknown]
  - Feeding disorder [Unknown]
  - Neutropenia [Not Recovered/Not Resolved]
  - White blood cell count decreased [Unknown]
  - Urinary tract infection [Recovered/Resolved]
  - Blood cholesterol increased [Unknown]
  - Leukopenia [Not Recovered/Not Resolved]
  - Influenza like illness [Unknown]
  - Dizziness [Unknown]
  - Pruritus [Recovering/Resolving]
  - Vertigo [Unknown]
  - Discomfort [Unknown]
  - Nausea [Unknown]
  - Diarrhoea [Unknown]
  - Insomnia [Unknown]
  - Rash pustular [Recovering/Resolving]
  - Decreased appetite [Unknown]
  - Fatigue [Unknown]
  - Headache [Unknown]
  - Oropharyngeal pain [Unknown]
  - Vomiting [Unknown]
  - Anaemia [Not Recovered/Not Resolved]
  - Platelet count decreased [Unknown]

NARRATIVE: CASE EVENT DATE: 2014
